FAERS Safety Report 14312274 (Version 1)
Quarter: 2017Q4

REPORT INFORMATION
  Report Type: Spontaneous
  Country: US (occurrence: US)
  Receive Date: 20171221
  Receipt Date: 20171221
  Transmission Date: 20180321
  Serious: Yes (Hospitalization)
  Sender: FDA-Public Use
  Company Number: US-ASTELLAS-2017US050028

PATIENT
  Sex: Male

DRUGS (1)
  1. XTANDI [Suspect]
     Active Substance: ENZALUTAMIDE
     Indication: PROSTATE CANCER
     Route: 048
     Dates: start: 20171102

REACTIONS (6)
  - Middle insomnia [Unknown]
  - Bone pain [Unknown]
  - Infection [Unknown]
  - Insomnia [Unknown]
  - Pain [Unknown]
  - Initial insomnia [Unknown]
